FAERS Safety Report 8342396-4 (Version None)
Quarter: 2012Q2

REPORT INFORMATION
  Report Type: 
  Country: None (occurrence: None)
  Receive Date: 20120508
  Receipt Date: 20120430
  Transmission Date: 20120825
  Serious: No
  Sender: FDA-Public Use
  Company Number: US-BIOGENIDEC-2011BI018027

PATIENT
  Sex: Female

DRUGS (2)
  1. TYSABRI [Suspect]
     Indication: MULTIPLE SCLEROSIS
     Route: 042
     Dates: start: 20110419, end: 20120313
  2. AVONEX [Concomitant]
     Indication: MULTIPLE SCLEROSIS
     Route: 030

REACTIONS (14)
  - DRUG INEFFECTIVE [None]
  - LOCAL SWELLING [None]
  - SINUS HEADACHE [None]
  - INSOMNIA [None]
  - EYE PAIN [None]
  - FEELING ABNORMAL [None]
  - PAIN [None]
  - FATIGUE [None]
  - NAUSEA [None]
  - FLUID RETENTION [None]
  - HEMIPARESIS [None]
  - DIZZINESS [None]
  - PARAESTHESIA [None]
  - VOMITING [None]
